FAERS Safety Report 7124431-4 (Version None)
Quarter: 2010Q4

REPORT INFORMATION
  Report Type: 
  Country: None (occurrence: None)
  Receive Date: 20101126
  Receipt Date: 20091014
  Transmission Date: 20110411
  Serious: Yes (Other)
  Sender: FDA-Public Use
  Company Number: PHHY2009NZ66989

PATIENT
  Sex: Male

DRUGS (5)
  1. CLOZARIL [Suspect]
     Indication: SCHIZOPHRENIA
     Dosage: 100 MG MANE (IN TH MORNING) AND UP TO 125 MG NOCTE (AT NIGHT)
     Route: 048
     Dates: start: 20090210
  2. CLOZARIL [Suspect]
     Dosage: 50 MG NOCTE
     Route: 048
  3. LEVOTHYROXINE SODIUM [Concomitant]
     Dosage: 100 MCG/DAY
  4. VALPROATE SODIUM [Concomitant]
     Dosage: 500MG MANE AND 1000MG NOCTE
  5. CLONAZEPAM [Concomitant]
     Dosage: 1 MG DAILY

REACTIONS (4)
  - ASPIRATION [None]
  - DEMENTIA WITH LEWY BODIES [None]
  - DRUG INEFFECTIVE [None]
  - SALIVARY HYPERSECRETION [None]
